FAERS Safety Report 16725787 (Version 1)
Quarter: 2019Q3

REPORT INFORMATION
  Report Type: Spontaneous
  Country: HU (occurrence: HU)
  Receive Date: 20190821
  Receipt Date: 20190821
  Transmission Date: 20191005
  Serious: Yes (Other)
  Sender: FDA-Public Use
  Company Number: HU-ROCHE-2382889

PATIENT
  Age: 86 Year
  Sex: Male
  Weight: 76 kg

DRUGS (6)
  1. RENITEC [ENALAPRIL MALEATE] [Concomitant]
     Active Substance: ENALAPRIL MALEATE
  2. ASA [Concomitant]
     Active Substance: ASPIRIN
  3. ATORVASTATIN [Concomitant]
     Active Substance: ATORVASTATIN
  4. CONCOR [Concomitant]
     Active Substance: BISOPROLOL FUMARATE
  5. DHC [Concomitant]
     Active Substance: DIHYDROCODEINE BITARTRATE
  6. ALECENSA [Suspect]
     Active Substance: ALECTINIB HYDROCHLORIDE
     Indication: NON-SMALL CELL LUNG CANCER
     Route: 048
     Dates: start: 20190529, end: 20190605

REACTIONS (1)
  - Dermatitis [Recovered/Resolved]

NARRATIVE: CASE EVENT DATE: 20190605
